FAERS Safety Report 9197131 (Version 1)
Quarter: 2013Q1

REPORT INFORMATION
  Report Type: Spontaneous
  Country: FR (occurrence: FR)
  Receive Date: 20130328
  Receipt Date: 20130328
  Transmission Date: 20140127
  Serious: Yes (Hospitalization)
  Sender: FDA-Public Use
  Company Number: FR-ROCHE-1205667

PATIENT
  Sex: Male

DRUGS (11)
  1. ROCEPHINE [Suspect]
     Indication: BRAIN ABSCESS
     Route: 042
     Dates: end: 20111207
  2. DALACINE [Suspect]
     Indication: BRAIN ABSCESS
     Route: 048
     Dates: end: 20111207
  3. MOTILIUM (AUSTRALIA) [Concomitant]
  4. FORLAX (AUSTRIA) [Concomitant]
  5. PARIET [Concomitant]
  6. LYRICA [Concomitant]
  7. LAROXYL [Concomitant]
  8. RIVOTRIL [Concomitant]
  9. LOVENOX [Concomitant]
  10. TOPALGIC [Concomitant]
  11. VIRLIX [Concomitant]

REACTIONS (1)
  - Parapsoriasis [Recovered/Resolved]
